FAERS Safety Report 26089098 (Version 1)
Quarter: 2025Q4

REPORT INFORMATION
  Report Type: Spontaneous
  Country: US (occurrence: US)
  Receive Date: 20251125
  Receipt Date: 20251125
  Transmission Date: 20260119
  Serious: No
  Sender: SANOFI AVENTIS
  Company Number: US-SA-2025SA348608

PATIENT
  Age: 46 Year
  Sex: Female

DRUGS (17)
  1. DUPIXENT [Suspect]
     Active Substance: DUPILUMAB
     Indication: Neoplasm skin
     Dosage: 300 MG, QOW
     Route: 058
     Dates: start: 20251007
  2. HYDROCORTISONE [Concomitant]
     Active Substance: HYDROCORTISONE
  3. FISH OIL [Concomitant]
     Active Substance: FISH OIL
  4. FENTANYL [Concomitant]
     Active Substance: FENTANYL
  5. EPIPEN [Concomitant]
     Active Substance: EPINEPHRINE
  6. DIAZEPAM [Concomitant]
     Active Substance: DIAZEPAM
  7. CYCLOBENZAPRINE [Concomitant]
     Active Substance: CYCLOBENZAPRINE
  8. CHLORHEXIDINE [Concomitant]
     Active Substance: CHLORHEXIDINE
  9. AMPHETAMINE [Concomitant]
     Active Substance: AMPHETAMINE
  10. ZINC [Concomitant]
     Active Substance: ZINC
  11. VENLAFAXINE [Concomitant]
     Active Substance: VENLAFAXINE HYDROCHLORIDE
  12. RIZATRIPTAN [Concomitant]
     Active Substance: RIZATRIPTAN
  13. PROPRANOLOL [Concomitant]
     Active Substance: PROPRANOLOL HYDROCHLORIDE
  14. OXYCODONE [Concomitant]
     Active Substance: OXYCODONE
  15. ONDANSETRON [Concomitant]
     Active Substance: ONDANSETRON
  16. LEVOTHYROXINE [Concomitant]
     Active Substance: LEVOTHYROXINE
  17. HYDROXYZINE [Concomitant]
     Active Substance: HYDROXYZINE HYDROCHLORIDE

REACTIONS (3)
  - Vomiting [Unknown]
  - Dry eye [Unknown]
  - Product use in unapproved indication [Unknown]

NARRATIVE: CASE EVENT DATE: 20250101
